FAERS Safety Report 21434373 (Version 1)
Quarter: 2022Q4

REPORT INFORMATION
  Report Type: Spontaneous
  Country: DE (occurrence: DE)
  Receive Date: 20221010
  Receipt Date: 20221010
  Transmission Date: 20230113
  Serious: No
  Sender: FDA-Public Use
  Company Number: None

PATIENT
  Age: 24 Year
  Sex: Male
  Weight: 61 kg

DRUGS (1)
  1. IBUPROFEN [Suspect]
     Active Substance: IBUPROFEN
     Indication: Headache
     Dosage: 400 MILLIGRAM (1 TOTAL) (FILM-COATED TABLET)
     Route: 048
     Dates: start: 20220814, end: 20220814

REACTIONS (1)
  - Dermatitis acneiform [Unknown]

NARRATIVE: CASE EVENT DATE: 20220814
